FAERS Safety Report 11783112 (Version 1)
Quarter: 2015Q4

REPORT INFORMATION
  Report Type: Report from Study
  Country: US (occurrence: US)
  Receive Date: 20151127
  Receipt Date: 20151127
  Transmission Date: 20160305
  Serious: Yes (Other)
  Sender: FDA-Public Use
  Company Number: US-ABBVIE-15K-163-1504963-00

PATIENT
  Age: 41 Year
  Sex: Female

DRUGS (3)
  1. IRON [Concomitant]
     Active Substance: IRON
     Indication: PRODUCT USED FOR UNKNOWN INDICATION
  2. MERCAPTOPURINE. [Concomitant]
     Active Substance: MERCAPTOPURINE
     Indication: PRODUCT USED FOR UNKNOWN INDICATION
  3. HUMIRA [Suspect]
     Active Substance: ADALIMUMAB
     Indication: CROHN^S DISEASE
     Route: 058
     Dates: start: 20131206

REACTIONS (7)
  - Anal abscess [Recovered/Resolved]
  - Anal fistula [Recovered/Resolved]
  - Incorrect dose administered [Unknown]
  - Anal abscess [Recovered/Resolved]
  - Anal fistula [Recovered/Resolved]
  - Skin ulcer [Unknown]
  - Device issue [Unknown]

NARRATIVE: CASE EVENT DATE: 2015
